FAERS Safety Report 4597039-2 (Version None)
Quarter: 2005Q1

REPORT INFORMATION
  Report Type: 
  Country: None (occurrence: None)
  Receive Date: 20050301
  Receipt Date: 20050216
  Transmission Date: 20050727
  Serious: Yes (Life-Threatening, Disabling, Other)
  Sender: FDA-Public Use
  Company Number: 2005035099

PATIENT
  Age: 76 Year
  Sex: 0
  Weight: 82.6 kg

DRUGS (5)
  1. CELEBREX [Suspect]
     Indication: ARTHRITIS
     Dosage: 400 MG (200 MG, 2 IN 1 D), ORAL
     Route: 048
     Dates: start: 20041016, end: 20050201
  2. SALMETEROL (SALMETEROL) [Concomitant]
  3. SALBUTAMOL (SALBUTAMOL) [Concomitant]
  4. MEPTAZINOL (MEPTAZINOL) [Concomitant]
  5. OMEPRAZOLE [Concomitant]

REACTIONS (1)
  - CHRONIC OBSTRUCTIVE AIRWAYS DISEASE EXACERBATED [None]
